FAERS Safety Report 5746243-6 (Version None)
Quarter: 2008Q2

REPORT INFORMATION
  Report Type: 
  Country: None (occurrence: None)
  Receive Date: 20080522
  Receipt Date: 20080514
  Transmission Date: 20081010
  Serious: Yes (Other)
  Sender: FDA-Public Use
  Company Number: PHBS2007JP10291

PATIENT
  Age: 78 Year
  Sex: Male
  Weight: 58 kg

DRUGS (8)
  1. ZOMETA [Suspect]
     Indication: MULTIPLE MYELOMA
     Dosage: 4 MG X 11 TIMES
     Route: 042
     Dates: start: 20060622, end: 20070329
  2. AREDIA [Suspect]
     Indication: MULTIPLE MYELOMA
     Dosage: 30 MG X 19 TIMES
     Route: 042
     Dates: start: 20050811, end: 20060608
  3. MELPHALAN [Concomitant]
     Dosage: 50 TO 95 MG
     Dates: start: 20031003, end: 20060707
  4. PREDNISOLONE [Suspect]
     Dosage: 95MG
     Route: 048
     Dates: start: 20031003, end: 20040319
  5. PREDNISOLONE [Suspect]
     Dosage: 50MG
     Route: 048
     Dates: start: 20040409, end: 20050317
  6. PREDNISOLONE [Suspect]
     Dosage: 95MG
     Route: 048
     Dates: start: 20050428, end: 20050701
  7. PREDNISOLONE [Suspect]
     Dosage: 60MG
     Route: 048
     Dates: start: 20050728, end: 20060707
  8. PREDNISOLONE [Suspect]
     Dosage: 50MG
     Dates: start: 20060803, end: 20070621

REACTIONS (19)
  - ANAEMIA [None]
  - BIOPSY BONE [None]
  - BLOOD CREATININE INCREASED [None]
  - BLOOD IMMUNOGLOBULIN A INCREASED [None]
  - BLOOD UREA INCREASED [None]
  - BONE DISORDER [None]
  - BONE LESION [None]
  - DECUBITUS ULCER [None]
  - GINGIVAL PAIN [None]
  - HAEMOGLOBIN DECREASED [None]
  - NASOPHARYNGITIS [None]
  - OSTEOMYELITIS [None]
  - OSTEONECROSIS [None]
  - PRIMARY SEQUESTRUM [None]
  - PROTEIN TOTAL INCREASED [None]
  - RED BLOOD CELL COUNT DECREASED [None]
  - RENAL IMPAIRMENT [None]
  - SENSATION OF FOREIGN BODY [None]
  - SINUSITIS [None]
